FAERS Safety Report 8435413-4 (Version None)
Quarter: 2012Q2

REPORT INFORMATION
  Report Type: 
  Country: None (occurrence: None)
  Receive Date: 20120614
  Receipt Date: 20120531
  Transmission Date: 20120825
  Serious: Yes (Death, Other)
  Sender: FDA-Public Use
  Company Number: US-UCBSA-059289

PATIENT
  Age: 48 Year
  Sex: Male

DRUGS (4)
  1. BENZOYLECGONINE [Concomitant]
  2. CITALOPRAM [Concomitant]
  3. CYCLOBENZAPRINE [Concomitant]
  4. LEVETIRACETAM [Suspect]
     Dates: end: 20100101

REACTIONS (2)
  - TOXICITY TO VARIOUS AGENTS [None]
  - COMPLETED SUICIDE [None]
